FAERS Safety Report 16575388 (Version 1)
Quarter: 2019Q3

REPORT INFORMATION
  Report Type: Spontaneous
  Country: US (occurrence: US)
  Receive Date: 20190601
  Receipt Date: 20190601
  Transmission Date: 20191004
  Serious: Yes (Hospitalization)
  Sender: FDA-Public Use
  Company Number: None

PATIENT
  Age: 80 Year
  Sex: Male

DRUGS (1)
  1. APIXABAN [Suspect]
     Active Substance: APIXABAN
     Indication: ATRIAL FIBRILLATION
     Route: 048
     Dates: start: 20180625, end: 20190101

REACTIONS (3)
  - Arteriovenous fistula site complication [None]
  - Haemorrhage [None]
  - Shock haemorrhagic [None]

NARRATIVE: CASE EVENT DATE: 20190101
